FAERS Safety Report 11433739 (Version 2)
Quarter: 2015Q3

REPORT INFORMATION
  Report Type: Report from Study
  Country: CA (occurrence: CA)
  Receive Date: 20150831
  Receipt Date: 20150909
  Transmission Date: 20151125
  Serious: Yes (Other)
  Sender: FDA-Public Use
  Company Number: PHHY2015CA065665

PATIENT
  Age: 41 Year
  Sex: Female

DRUGS (4)
  1. ATIVAN [Concomitant]
     Active Substance: LORAZEPAM
     Indication: PRODUCT USED FOR UNKNOWN INDICATION
     Route: 065
  2. LAX-A-DAY [Concomitant]
     Indication: PRODUCT USED FOR UNKNOWN INDICATION
     Route: 065
  3. SANDOSTATIN LAR DEPOT [Suspect]
     Active Substance: OCTREOTIDE ACETATE
     Indication: INTESTINAL CYST
     Dosage: 20 MG, QMO
     Route: 030
     Dates: start: 20150521
  4. MORPHINE [Concomitant]
     Active Substance: MORPHINE
     Indication: PRODUCT USED FOR UNKNOWN INDICATION
     Dosage: 30 MG, Q12H
     Route: 065

REACTIONS (24)
  - Suicidal ideation [Unknown]
  - Abdominal rigidity [Unknown]
  - Discomfort [Unknown]
  - Fatigue [Unknown]
  - Off label use [Unknown]
  - Feeling abnormal [Unknown]
  - Diarrhoea [Unknown]
  - Pancreatitis acute [Unknown]
  - Loss of consciousness [Unknown]
  - Frustration [Unknown]
  - Abdominal distension [Unknown]
  - Feeling hot [Unknown]
  - Speech disorder [Unknown]
  - Hypophagia [Unknown]
  - Insomnia [Unknown]
  - Dizziness [Unknown]
  - Vomiting [Unknown]
  - Abdominal pain [Not Recovered/Not Resolved]
  - Crying [Unknown]
  - Decreased appetite [Unknown]
  - Nausea [Unknown]
  - Malaise [Unknown]
  - Stress [Unknown]
  - Dysstasia [Unknown]

NARRATIVE: CASE EVENT DATE: 2015
